APPROVED DRUG PRODUCT: ENVARSUS XR
Active Ingredient: TACROLIMUS
Strength: EQ 4MG BASE
Dosage Form/Route: TABLET, EXTENDED RELEASE;ORAL
Application: N206406 | Product #003
Applicant: VELOXIS PHARMACEUTICALS INC
Approved: Jul 10, 2015 | RLD: Yes | RS: Yes | Type: RX

PATENTS:
Patent 8685998 | Expires: Aug 30, 2028
Patent 8664239 | Expires: Aug 30, 2028
Patent 8685998 | Expires: Aug 30, 2028
Patent 8685998 | Expires: Aug 30, 2028
Patent 11123331 | Expires: May 30, 2028
Patent 8664239 | Expires: Aug 30, 2028
Patent 11110081 | Expires: May 30, 2028
Patent 12083103 | Expires: May 30, 2028
Patent 8664239 | Expires: Aug 30, 2028
Patent 10864199 | Expires: May 30, 2028
Patent 10864199 | Expires: May 30, 2028
Patent 11419823 | Expires: May 30, 2028
Patent 9549918 | Expires: May 30, 2028
Patent 12403095 | Expires: May 30, 2028
Patent 10166190 | Expires: May 30, 2028